FAERS Safety Report 15534978 (Version 2)
Quarter: 2018Q4

REPORT INFORMATION
  Report Type: Spontaneous
  Country: HN (occurrence: HN)
  Receive Date: 20181022
  Receipt Date: 20181206
  Transmission Date: 20190205
  Serious: Yes (Other)
  Sender: FDA-Public Use
  Company Number: HN-AMGEN-HNDSP2018146309

PATIENT
  Age: 72 Year
  Sex: Male

DRUGS (1)
  1. ENBREL [Suspect]
     Active Substance: ETANERCEPT
     Indication: PRODUCT USED FOR UNKNOWN INDICATION
     Dosage: UNK
     Route: 065

REACTIONS (5)
  - Cardiovascular disorder [Unknown]
  - Fluid retention [Unknown]
  - Liver disorder [Unknown]
  - Gastrointestinal haemorrhage [Unknown]
  - Peripheral vascular disorder [Unknown]
